FAERS Safety Report 12992957 (Version 5)
Quarter: 2017Q3

REPORT INFORMATION
  Report Type: Spontaneous
  Country: US (occurrence: US)
  Receive Date: 20161202
  Receipt Date: 20170728
  Transmission Date: 20171127
  Serious: Yes (Death)
  Sender: FDA-Public Use
  Company Number: US-ACTELION-A-NJ2016-145651

PATIENT
  Age: 73 Year
  Sex: Male
  Weight: 57.14 kg

DRUGS (8)
  1. VELETRI [Suspect]
     Active Substance: EPOPROSTENOL
     Indication: PULMONARY ARTERIAL HYPERTENSION
     Dosage: 10 NG/KG, PER MIN
     Route: 042
     Dates: start: 20160822
  2. OXYGEN. [Concomitant]
     Active Substance: OXYGEN
     Dosage: 21 L/MIN, UNK
     Route: 045
  3. OXYGEN. [Concomitant]
     Active Substance: OXYGEN
     Dosage: 8 L/MIN, UNK
  4. REVATIO [Concomitant]
     Active Substance: SILDENAFIL CITRATE
  5. VELETRI [Suspect]
     Active Substance: EPOPROSTENOL
     Dosage: 33 NG/KG, PER MIN
     Route: 042
  6. VELETRI [Suspect]
     Active Substance: EPOPROSTENOL
     Dosage: 39 NG/KG, PER MIN
     Route: 042
     Dates: end: 20170721
  7. LETAIRIS [Concomitant]
     Active Substance: AMBRISENTAN
  8. WARFARIN [Concomitant]
     Active Substance: WARFARIN

REACTIONS (11)
  - Catheter site pruritus [Unknown]
  - Dyspnoea [Unknown]
  - Catheter site erythema [Unknown]
  - Pulmonary arterial hypertension [Fatal]
  - Oxygen saturation decreased [Unknown]
  - Headache [Unknown]
  - General physical health deterioration [Unknown]
  - Weight decreased [Unknown]
  - Restlessness [Unknown]
  - Discomfort [Unknown]
  - Confusional state [Unknown]

NARRATIVE: CASE EVENT DATE: 20161113
